FAERS Safety Report 12343155 (Version 1)
Quarter: 2016Q2

REPORT INFORMATION
  Report Type: Spontaneous
  Country: KR (occurrence: KR)
  Receive Date: 20160506
  Receipt Date: 20160506
  Transmission Date: 20160815
  Serious: Yes (Life-Threatening, Hospitalization)
  Sender: FDA-Public Use
  Company Number: KR-ASTRAZENECA-2016SE41788

PATIENT
  Age: 56 Year
  Sex: Male

DRUGS (5)
  1. BRILINTA [Suspect]
     Active Substance: TICAGRELOR
     Indication: MYOCARDIAL INFARCTION
     Route: 048
     Dates: start: 20150517, end: 20160418
  2. ASPIRIN. [Concomitant]
     Active Substance: ASPIRIN
     Route: 048
     Dates: start: 20150517, end: 20160418
  3. ESOMEPRAZOLE [Concomitant]
     Active Substance: ESOMEPRAZOLE
     Route: 048
     Dates: start: 20150517, end: 20160418
  4. DILATREND [Concomitant]
     Active Substance: CARVEDILOL
     Route: 048
     Dates: start: 20150517, end: 20160418
  5. THEOLAN [Concomitant]
     Indication: DYSPNOEA
     Route: 048
     Dates: start: 201505, end: 201603

REACTIONS (2)
  - Coma [Unknown]
  - Cerebral haemorrhage [Not Recovered/Not Resolved]

NARRATIVE: CASE EVENT DATE: 20160418
